FAERS Safety Report 16937835 (Version 3)
Quarter: 2019Q4

REPORT INFORMATION
  Report Type: Spontaneous
  Country: JP (occurrence: JP)
  Receive Date: 20191018
  Receipt Date: 20191108
  Transmission Date: 20200122
  Serious: Yes (Hospitalization)
  Sender: FDA-Public Use
  Company Number: JP-GLAXOSMITHKLINE-JP2019JPN166321

PATIENT
  Age: 19 Year
  Sex: Female
  Weight: 46 kg

DRUGS (10)
  1. FLOLAN [Suspect]
     Active Substance: EPOPROSTENOL SODIUM
     Indication: PULMONARY ARTERIAL HYPERTENSION
     Dosage: 67.5 NG/KG,/MIN
     Route: 042
     Dates: end: 20190911
  2. VOLIBRIS TABLETS [Concomitant]
     Dosage: 7.5 MG, QD
  3. BAYASPIRIN TABLETS [Concomitant]
     Dosage: 100 MG, QD
  4. ADCIRCA TABLETS [Concomitant]
     Dosage: 40 MG, QD
  5. BAKTAR COMBINATION GRANULES [Concomitant]
     Dosage: 0.5 G, BID
  6. EBASTINE OD TABLETS [Concomitant]
     Dosage: 5 MG, QD
  7. FLOLAN [Suspect]
     Active Substance: EPOPROSTENOL SODIUM
     Dosage: 63.1 NG/KG/MIN
     Route: 042
     Dates: start: 201910
  8. ALDACTONE-A TABLETS [Concomitant]
     Dosage: 25 MG, BID
  9. FLOLAN [Suspect]
     Active Substance: EPOPROSTENOL SODIUM
     Dosage: 67.5 NG/KG/MIN
     Route: 042
  10. FUROSEMIDE TABLETS [Concomitant]
     Active Substance: FUROSEMIDE
     Dosage: 20 MG, BID

REACTIONS (6)
  - Palpitations [Recovered/Resolved]
  - Flushing [Recovered/Resolved]
  - Therapy cessation [Unknown]
  - Product complaint [Unknown]
  - Tachycardia [Recovered/Resolved]
  - Headache [Recovered/Resolved]

NARRATIVE: CASE EVENT DATE: 20190910
